FAERS Safety Report 10554398 (Version 2)
Quarter: 2016Q1

REPORT INFORMATION
  Report Type: Spontaneous
  Country: US (occurrence: US)
  Receive Date: 20141030
  Receipt Date: 20160129
  Transmission Date: 20160525
  Serious: No
  Sender: FDA-Public Use
  Company Number: US-PFIZER INC-2014299953

PATIENT
  Sex: Male

DRUGS (1)
  1. LYRICA [Suspect]
     Active Substance: PREGABALIN
     Dosage: 3 DF, 1X/DAY

REACTIONS (3)
  - Intentional product misuse [Unknown]
  - Pain in extremity [Unknown]
  - Neuralgia [Unknown]
